FAERS Safety Report 14499139 (Version 1)
Quarter: 2018Q1

REPORT INFORMATION
  Report Type: Spontaneous
  Country: US (occurrence: US)
  Receive Date: 20180207
  Receipt Date: 20180207
  Transmission Date: 20180509
  Serious: No
  Sender: FDA-Public Use
  Company Number: US-JAZZ-2017-US-002075

PATIENT
  Sex: Female

DRUGS (1)
  1. PRIALT [Suspect]
     Active Substance: ZICONOTIDE ACETATE
     Indication: TRIGEMINAL NEURALGIA
     Dosage: UNK
     Route: 037
     Dates: start: 20170203

REACTIONS (3)
  - Headache [Unknown]
  - Muscle spasms [Unknown]
  - Back pain [Unknown]
